FAERS Safety Report 20890259 (Version 3)
Quarter: 2022Q2

REPORT INFORMATION
  Report Type: Spontaneous
  Country: GB (occurrence: GB)
  Receive Date: 20220530
  Receipt Date: 20220606
  Transmission Date: 20220721
  Serious: Yes (Other)
  Sender: FDA-Public Use
  Company Number: GB-NOVARTISPH-NVSC2022GB123733

PATIENT
  Sex: Female

DRUGS (1)
  1. MAYZENT [Suspect]
     Active Substance: SIPONIMOD
     Indication: Multiple sclerosis
     Dosage: 1 MG (5 WEEKS AGO)
     Route: 065

REACTIONS (4)
  - Blindness [Unknown]
  - Multiple sclerosis relapse [Unknown]
  - Gait inability [Unknown]
  - Asthenia [Unknown]
